FAERS Safety Report 4609569-5 (Version None)
Quarter: 2005Q1

REPORT INFORMATION
  Report Type: 
  Country: None (occurrence: None)
  Receive Date: 20050314
  Receipt Date: 20050314
  Transmission Date: 20050727
  Serious: Yes (Hospitalization)
  Sender: FDA-Public Use
  Company Number: None

PATIENT
  Age: 53 Year
  Sex: Male
  Weight: 117.1 kg

DRUGS (2)
  1. DICLOFENAC 75 MG [Suspect]
     Indication: OSTEOARTHRITIS
     Dosage: 75 MG ID ORAL
     Route: 048
  2. ASPIRIN [Suspect]
     Indication: DIABETES MELLITUS
     Dosage: 81 MG ONCE ORAL
     Route: 048

REACTIONS (2)
  - DIARRHOEA HAEMORRHAGIC [None]
  - GASTROINTESTINAL HAEMORRHAGE [None]
